FAERS Safety Report 12325712 (Version 3)
Quarter: 2016Q3

REPORT INFORMATION
  Report Type: Spontaneous
  Country: VE (occurrence: VE)
  Receive Date: 20160503
  Receipt Date: 20160912
  Transmission Date: 20161109
  Serious: Yes (Disabling, Other)
  Sender: FDA-Public Use
  Company Number: PHHY2016VE057171

PATIENT
  Age: 89 Year
  Sex: Female

DRUGS (3)
  1. DIOVAN [Suspect]
     Active Substance: VALSARTAN
     Indication: HYPERTENSION
     Dosage: 1 DF, QD
     Route: 048
  2. METFORMIN [Concomitant]
     Active Substance: METFORMIN HYDROCHLORIDE
     Indication: DIABETES MELLITUS
     Dosage: 1000 OT, QD
     Route: 065
  3. EUTIROX [Concomitant]
     Active Substance: LEVOTHYROXINE SODIUM
     Indication: THYROID DISORDER
     Dosage: 1 MG, QD
     Route: 065

REACTIONS (14)
  - Road traffic accident [Unknown]
  - Fear [Unknown]
  - Fatigue [Unknown]
  - Hypoacusis [Unknown]
  - Cardiac disorder [Unknown]
  - Hiatus hernia [Unknown]
  - Thyroid disorder [Unknown]
  - Dysphonia [Unknown]
  - Hip fracture [Unknown]
  - Cardiomegaly [Unknown]
  - Nervousness [Unknown]
  - Pelvic fracture [Unknown]
  - Feeling of despair [Unknown]
  - Pain [Unknown]
